FAERS Safety Report 24748783 (Version 2)
Quarter: 2025Q1

REPORT INFORMATION
  Report Type: Spontaneous
  Country: US (occurrence: US)
  Receive Date: 20241218
  Receipt Date: 20250114
  Transmission Date: 20250409
  Serious: No
  Sender: BAYER HEALTHCARE PHARMACEUTICALS INC.
  Company Number: US-BAYER-2024A175560

PATIENT
  Sex: Female

DRUGS (1)
  1. CLIMARA PRO [Suspect]
     Active Substance: ESTRADIOL\LEVONORGESTREL
     Route: 062
     Dates: start: 2024

REACTIONS (4)
  - Device adhesion issue [None]
  - Product physical issue [None]
  - Dry mouth [None]
  - Dry skin [None]

NARRATIVE: CASE EVENT DATE: 20240101
